FAERS Safety Report 11423927 (Version 1)
Quarter: 2015Q3

REPORT INFORMATION
  Report Type: Spontaneous
  Country: US (occurrence: US)
  Receive Date: 20150827
  Receipt Date: 20150827
  Transmission Date: 20151125
  Serious: No
  Sender: FDA-Public Use
  Company Number: US-JNJFOC-20150419487

PATIENT
  Age: 7 Year
  Sex: Female
  Weight: 22.68 kg

DRUGS (2)
  1. CHILDRENS MOTRIN [Suspect]
     Active Substance: IBUPROFEN
     Indication: PYREXIA
     Dosage: ONCE IN THE MORNING AND ONCE AT NIGHT USING THE APPLICATOR CUP
     Route: 048
     Dates: end: 20150420
  2. CHILDRENS MOTRIN [Suspect]
     Active Substance: IBUPROFEN
     Indication: NASOPHARYNGITIS
     Dosage: ONCE IN THE MORNING AND ONCE AT NIGHT USING THE APPLICATOR CUP
     Route: 048
     Dates: end: 20150420

REACTIONS (3)
  - Drug ineffective [Unknown]
  - Pyrexia [Recovering/Resolving]
  - Malaise [Recovering/Resolving]
